FAERS Safety Report 9253989 (Version 3)
Quarter: 2013Q3

REPORT INFORMATION
  Report Type: Spontaneous
  Country: US (occurrence: US)
  Receive Date: 20130425
  Receipt Date: 20130927
  Transmission Date: 20140515
  Serious: Yes (Other)
  Sender: FDA-Public Use
  Company Number: US-ASTRAZENECA-2013SE27409

PATIENT
  Age: 520 Month
  Sex: Female

DRUGS (23)
  1. NEXIUM [Suspect]
     Indication: GASTRIC DISORDER
     Dosage: THREE TIMES A DAY
     Route: 048
  2. NEXIUM [Suspect]
     Indication: GASTRIC DISORDER
     Route: 048
     Dates: start: 20081231
  3. PRILOSEC [Suspect]
     Route: 048
  4. PREVACID [Concomitant]
     Dosage: AS DIRECTED
     Dates: start: 20050223
  5. PANTOPRAZOLE [Concomitant]
  6. RANITIDINE [Concomitant]
  7. TAGMENT [Concomitant]
  8. ZANTAC [Concomitant]
  9. PEPCID [Concomitant]
  10. CARAFATE [Concomitant]
  11. GABAPENTIN [Concomitant]
     Route: 048
     Dates: start: 20100216
  12. LISINOPRIL [Concomitant]
     Route: 048
     Dates: start: 20090921
  13. CARVEDILOL [Concomitant]
     Route: 048
     Dates: start: 20111206
  14. PREDNISONE [Concomitant]
     Route: 048
     Dates: start: 20101210
  15. SEROQUEL [Concomitant]
     Route: 048
     Dates: start: 20040519
  16. FUROSEMIDE [Concomitant]
     Route: 048
     Dates: start: 20070831
  17. LYRICA [Concomitant]
     Route: 048
     Dates: start: 20080423
  18. GEODON [Concomitant]
     Route: 048
     Dates: start: 20020214
  19. ZOLOFT [Concomitant]
     Route: 048
     Dates: start: 20020214
  20. NAPRAPAC [Concomitant]
  21. MILK OF MAGNESIA [Concomitant]
  22. PRIMIDONE [Concomitant]
  23. VISTARIL [Concomitant]

REACTIONS (16)
  - Suicidal ideation [Unknown]
  - Pancreatitis chronic [Unknown]
  - Neuropathy peripheral [Unknown]
  - Osteoporosis [Unknown]
  - Bone disorder [Unknown]
  - Foot fracture [Unknown]
  - Bipolar disorder [Unknown]
  - Anxiety [Unknown]
  - Arthritis [Unknown]
  - Cardiovascular disorder [Unknown]
  - Peripheral arterial occlusive disease [Unknown]
  - Fibromyalgia [Unknown]
  - Cardiac failure congestive [Unknown]
  - Pain in extremity [Unknown]
  - Depression [Unknown]
  - Arthralgia [Unknown]
